FAERS Safety Report 18272475 (Version 2)
Quarter: 2022Q1

REPORT INFORMATION
  Report Type: Spontaneous
  Country: US (occurrence: US)
  Receive Date: 20200916
  Receipt Date: 20220221
  Transmission Date: 20220423
  Serious: Yes (Other)
  Sender: FDA-Public Use
  Company Number: US-BAYER-2020-180738

PATIENT
  Age: 27 Year
  Sex: Male

DRUGS (1)
  1. GADAVIST [Suspect]
     Active Substance: GADOBUTROL
     Indication: Scan
     Dosage: UNK UNK, ONCE
     Route: 042
     Dates: start: 20200529, end: 20200529

REACTIONS (12)
  - Pain [None]
  - Oral discomfort [None]
  - Swollen tongue [None]
  - Pharyngeal swelling [None]
  - Lip swelling [None]
  - Eye swelling [None]
  - Eye disorder [None]
  - Renal pain [None]
  - Arthralgia [None]
  - Arthralgia [None]
  - Arthralgia [None]
  - Asthenia [None]

NARRATIVE: CASE EVENT DATE: 20200529
